FAERS Safety Report 6569727-X (Version None)
Quarter: 2010Q1

REPORT INFORMATION
  Report Type: 
  Country: None (occurrence: None)
  Receive Date: 20100204
  Receipt Date: 20100201
  Transmission Date: 20100710
  Serious: Yes (Death, Hospitalization, Other)
  Sender: FDA-Public Use
  Company Number: PHEH2009US12843

PATIENT
  Sex: Female

DRUGS (14)
  1. EXJADE [Suspect]
     Indication: MYELODYSPLASTIC SYNDROME
     Dosage: 1500 MG DAILY
     Route: 048
     Dates: start: 20080101
  2. EXJADE [Suspect]
     Indication: ANAEMIA
  3. EXJADE [Suspect]
     Indication: IRON OVERLOAD
  4. EXJADE [Suspect]
     Indication: TRANSFUSION
  5. PULMICORT [Concomitant]
     Dosage: UNK
  6. PERFORMIST [Concomitant]
     Dosage: UNK
  7. XOPENEX [Concomitant]
     Dosage: UNK
  8. MUCINEX [Concomitant]
     Dosage: UNK
     Route: 048
  9. PROTONIX [Concomitant]
     Dosage: 40 MG, BID
  10. MUCOMYST [Concomitant]
     Dosage: UNK
  11. DARVOCET-N 100 [Concomitant]
     Indication: PAIN
     Dosage: UNK
     Route: 048
  12. PHENERGAN HCL [Concomitant]
     Indication: NAUSEA
     Dosage: UNK
     Route: 048
  13. LACTOBACILLUS BULGARICUS [Concomitant]
     Dosage: UNK
  14. RANEXA [Concomitant]
     Dosage: 500 MG, BID
     Route: 048

REACTIONS (14)
  - ABDOMINAL PAIN [None]
  - ASTHENIA [None]
  - CHOLELITHIASIS [None]
  - CLOSTRIDIUM DIFFICILE COLITIS [None]
  - DEATH [None]
  - DIARRHOEA [None]
  - GASTROINTESTINAL INFECTION [None]
  - HAEMOGLOBIN DECREASED [None]
  - INTESTINAL HAEMORRHAGE [None]
  - PANCREATOLITHIASIS [None]
  - PNEUMONIA [None]
  - RESPIRATORY DISTRESS [None]
  - SERUM FERRITIN INCREASED [None]
  - VOMITING [None]
